FAERS Safety Report 8535517-1 (Version None)
Quarter: 2012Q3

REPORT INFORMATION
  Report Type: 
  Country: None (occurrence: None)
  Receive Date: 20120725
  Receipt Date: 20120716
  Transmission Date: 20120928
  Serious: No
  Sender: FDA-Public Use
  Company Number: US-CELGENEUS-163-21880-12063304

PATIENT
  Sex: Female

DRUGS (9)
  1. DOXYCYCLINE HYCLATE [Concomitant]
     Route: 065
  2. BYSTOLIC [Concomitant]
     Route: 065
  3. CALCIUM [Concomitant]
     Route: 065
  4. CYMBALTA [Concomitant]
     Route: 065
  5. ASPIRIN [Concomitant]
     Indication: PROPHYLAXIS
     Dosage: 81 MILLIGRAM
     Route: 065
  6. DEXAMETHASONE [Concomitant]
     Route: 065
  7. ALPRAZOLAM [Concomitant]
     Route: 065
  8. REVLIMID [Suspect]
     Dosage: 10 MILLIGRAM
     Route: 048
     Dates: start: 20120418, end: 20120515
  9. GLUCOPHAGE [Concomitant]
     Route: 065

REACTIONS (2)
  - GINGIVAL BLEEDING [None]
  - DERMATITIS [None]
